FAERS Safety Report 8444237-3 (Version None)
Quarter: 2012Q2

REPORT INFORMATION
  Report Type: 
  Country: None (occurrence: None)
  Receive Date: 20120323
  Receipt Date: 20110524
  Transmission Date: 20120825
  Serious: Yes (Hospitalization)
  Sender: FDA-Public Use
  Company Number: 163-21880-11053025

PATIENT
  Sex: Male

DRUGS (9)
  1. ALLOPURINAL (ALLOPURINAL) [Concomitant]
  2. COUMADIN [Concomitant]
  3. DEXAMETHASONE [Concomitant]
  4. LASIX [Concomitant]
  5. REVLIMID [Suspect]
     Indication: MULTIPLE MYELOMA
     Dosage: 10 MG, DAILY X 21 DAYS 7 DAYS OFF, PO
     Route: 048
     Dates: start: 20090801
  6. LYRICA [Concomitant]
  7. LEVOTHYROXINE SODIUM [Concomitant]
  8. POTASSIUM CHLORIDE [Concomitant]
  9. MORPHINE [Concomitant]

REACTIONS (1)
  - BRONCHITIS [None]
